FAERS Safety Report 22637799 (Version 1)
Quarter: 2023Q2

REPORT INFORMATION
  Report Type: Spontaneous
  Country: JP (occurrence: None)
  Receive Date: 20230626
  Receipt Date: 20230626
  Transmission Date: 20230722
  Serious: Yes (Death, Other)
  Sender: FDA-Public Use
  Company Number: 2023A143855

PATIENT

DRUGS (1)
  1. LOKELMA [Suspect]
     Active Substance: SODIUM ZIRCONIUM CYCLOSILICATE
     Indication: Hyperkalaemia
     Dosage: 5.0MG UNKNOWN
     Route: 048

REACTIONS (4)
  - Peritonitis [Fatal]
  - Gastrointestinal hypomotility [Unknown]
  - Product residue present [Unknown]
  - Incorrect route of product administration [Unknown]
